FAERS Safety Report 15345230 (Version 2)
Quarter: 2018Q3

REPORT INFORMATION
  Report Type: Spontaneous
  Country: CA (occurrence: CA)
  Receive Date: 20180903
  Receipt Date: 20180910
  Transmission Date: 20181010
  Serious: Yes (Death)
  Sender: FDA-Public Use
  Company Number: PHHY2018CA087508

PATIENT
  Sex: Male

DRUGS (1)
  1. VALSARTAN SANDOZ [Suspect]
     Active Substance: VALSARTAN
     Indication: HYPERTENSION
     Dosage: 40 MG, UNK
     Route: 065

REACTIONS (3)
  - Hypotension [Unknown]
  - Blood pressure inadequately controlled [Unknown]
  - Mantle cell lymphoma [Fatal]

NARRATIVE: CASE EVENT DATE: 201704
